FAERS Safety Report 22634163 (Version 1)
Quarter: 2023Q2

REPORT INFORMATION
  Report Type: Spontaneous
  Country: US (occurrence: None)
  Receive Date: 20230622
  Receipt Date: 20230622
  Transmission Date: 20230721
  Serious: No
  Sender: FDA-Public Use
  Company Number: None

PATIENT
  Age: 51 Year
  Sex: Male
  Weight: 80.1 kg

DRUGS (2)
  1. EFAVIRENZ\EMTRICITABINE\TENOFOVIR DISOPROXIL FUMARATE [Suspect]
     Active Substance: EFAVIRENZ\EMTRICITABINE\TENOFOVIR DISOPROXIL FUMARATE
     Dosage: FREQUENCY : DAILY;?
     Route: 048
     Dates: start: 20230617, end: 20230618
  2. PROPECIA [Concomitant]
     Active Substance: FINASTERIDE

REACTIONS (6)
  - Flushing [None]
  - Hyperhidrosis [None]
  - Dizziness [None]
  - Nausea [None]
  - Dyspnoea [None]
  - Performance fear [None]

NARRATIVE: CASE EVENT DATE: 20230617
